FAERS Safety Report 6105395-9 (Version None)
Quarter: 2009Q1

REPORT INFORMATION
  Report Type: 
  Country: None (occurrence: None)
  Receive Date: 20090227
  Receipt Date: 20080331
  Transmission Date: 20090719
  Serious: Yes (Hospitalization, Other)
  Sender: FDA-Public Use
  Company Number: RB-8815-2007

PATIENT
  Age: 48 Year
  Sex: Male

DRUGS (6)
  1. SUBOXONE [Suspect]
     Indication: DRUG DEPENDENCE
     Dosage: 12 MG SUBLINGUAL
     Route: 060
     Dates: start: 20060101, end: 20071001
  2. SUBOXONE [Suspect]
     Indication: DRUG DEPENDENCE
     Dosage: 12 MG SUBLINGUAL
     Route: 060
     Dates: start: 20071001, end: 20071209
  3. SUBUTEX [Suspect]
     Indication: DRUG DEPENDENCE
     Dosage: 12 MG SUBLINGUAL, 12 MG SUBLINGUAL
     Route: 060
     Dates: start: 20071001, end: 20071001
  4. SUBUTEX [Suspect]
     Indication: DRUG DEPENDENCE
     Dosage: 12 MG SUBLINGUAL, 12 MG SUBLINGUAL
     Route: 060
     Dates: start: 20071210
  5. PANCREATIC ENZYMES [Concomitant]
  6. ACETAMINOPHEN [Concomitant]

REACTIONS (2)
  - AGEUSIA [None]
  - PAIN [None]
